FAERS Safety Report 9464781 (Version 1)
Quarter: 2013Q3

REPORT INFORMATION
  Report Type: Spontaneous
  Country: FR (occurrence: FR)
  Receive Date: 20130819
  Receipt Date: 20130819
  Transmission Date: 20140515
  Serious: Yes (Hospitalization)
  Sender: FDA-Public Use
  Company Number: FR-GLAXOSMITHKLINE-B0914570A

PATIENT
  Age: 32 Year
  Sex: Female

DRUGS (2)
  1. AVAMYS [Suspect]
     Indication: SINUSITIS
     Route: 045
     Dates: start: 201304
  2. MELIANE [Suspect]
     Indication: CONTRACEPTION
     Route: 048
     Dates: end: 20130409

REACTIONS (8)
  - Intracranial venous sinus thrombosis [Not Recovered/Not Resolved]
  - Convulsion [Recovered/Resolved]
  - Loss of consciousness [Recovered/Resolved]
  - Headache [Unknown]
  - Papilloedema [Unknown]
  - Paraesthesia [Unknown]
  - Partial seizures [Unknown]
  - Off label use [Unknown]
